FAERS Safety Report 15795501 (Version 1)
Quarter: 2019Q1

REPORT INFORMATION
  Report Type: Spontaneous
  Country: US (occurrence: US)
  Receive Date: 20190107
  Receipt Date: 20190107
  Transmission Date: 20190417
  Serious: Yes (Hospitalization)
  Sender: FDA-Public Use
  Company Number: None

PATIENT
  Age: 85 Year
  Sex: Female
  Weight: 85.5 kg

DRUGS (8)
  1. LEVOTHYROXINE. [Concomitant]
     Active Substance: LEVOTHYROXINE
  2. FOSAMAX [Concomitant]
     Active Substance: ALENDRONATE SODIUM
  3. ASA [Concomitant]
     Active Substance: ASPIRIN
  4. VITAMIN D [Concomitant]
     Active Substance: CHOLECALCIFEROL
  5. PRAVASTATIN. [Concomitant]
     Active Substance: PRAVASTATIN
  6. METROPOLOL [Concomitant]
     Active Substance: METOPROLOL
  7. CALCIUM [Concomitant]
     Active Substance: CALCIUM
  8. LEVETIRACETAM. [Suspect]
     Active Substance: LEVETIRACETAM
     Indication: SEIZURE
     Dosage: ?          QUANTITY:1 TABLET(S);?
     Route: 048
     Dates: start: 20181124, end: 20181224

REACTIONS (2)
  - Tremor [None]
  - Delirium [None]

NARRATIVE: CASE EVENT DATE: 20181214
